FAERS Safety Report 9406841 (Version 1)
Quarter: 2013Q3

REPORT INFORMATION
  Report Type: Spontaneous
  Country: GT (occurrence: GT)
  Receive Date: 20130718
  Receipt Date: 20130718
  Transmission Date: 20140515
  Serious: Yes (Other)
  Sender: FDA-Public Use
  Company Number: PHHY2013GT023618

PATIENT
  Sex: 0

DRUGS (1)
  1. CATAFLAM [Suspect]
     Indication: PYREXIA
     Dosage: 6 ORAL DRP, Q6H
     Route: 048
     Dates: start: 20130311, end: 20130311

REACTIONS (4)
  - Gastrooesophageal reflux disease [Unknown]
  - Gastroduodenitis [Unknown]
  - Impaired gastric emptying [Unknown]
  - Upper gastrointestinal haemorrhage [Recovered/Resolved]
